FAERS Safety Report 7724374-9 (Version None)
Quarter: 2011Q3

REPORT INFORMATION
  Report Type: 
  Country: None (occurrence: None)
  Receive Date: 20110901
  Receipt Date: 20110824
  Transmission Date: 20111222
  Serious: Yes (Life-Threatening, Hospitalization, Other)
  Sender: FDA-Public Use
  Company Number: JP-ASTRAZENECA-2011SE51653

PATIENT
  Age: 54 Year
  Sex: Male

DRUGS (7)
  1. LEVOTOMIN [Concomitant]
     Route: 048
     Dates: start: 20100101
  2. SEROQUEL [Suspect]
     Indication: SCHIZOPHRENIA
     Route: 048
     Dates: start: 20100101, end: 20110214
  3. HALOPERIDOL [Concomitant]
     Route: 048
     Dates: start: 20100101
  4. AKINETON [Concomitant]
     Route: 048
     Dates: start: 20100101
  5. CLONAZEPAM [Concomitant]
     Route: 048
     Dates: start: 20100101
  6. SEROQUEL [Suspect]
     Route: 048
     Dates: start: 20110616, end: 20110623
  7. SEROQUEL [Suspect]
     Route: 048
     Dates: start: 20110217, end: 20110615

REACTIONS (7)
  - HYPOGLYCAEMIA [None]
  - HYPERHIDROSIS [None]
  - RESTLESSNESS [None]
  - PNEUMONIA ASPIRATION [None]
  - MUSCLE TIGHTNESS [None]
  - INSOMNIA [None]
  - BLOOD CREATINE PHOSPHOKINASE INCREASED [None]
